FAERS Safety Report 9932996 (Version 1)
Quarter: 2014Q1

REPORT INFORMATION
  Report Type: Spontaneous
  Country: US (occurrence: US)
  Receive Date: 20140228
  Receipt Date: 20140228
  Transmission Date: 20141002
  Serious: No
  Sender: FDA-Public Use
  Company Number: US-ABBVIE-13P-163-1115557-00

PATIENT
  Sex: Male

DRUGS (3)
  1. ANDROGEL [Suspect]
     Indication: BLOOD TESTOSTERONE DECREASED
     Route: 061
  2. ANDROGEL [Suspect]
     Route: 061
     Dates: start: 20130703
  3. FORTESTA [Suspect]
     Indication: BLOOD TESTOSTERONE DECREASED
     Dates: start: 201304

REACTIONS (2)
  - Blood testosterone decreased [Not Recovered/Not Resolved]
  - Rash [Not Recovered/Not Resolved]
